FAERS Safety Report 12639171 (Version 3)
Quarter: 2018Q3

REPORT INFORMATION
  Report Type: Report from Study
  Country: CA (occurrence: CA)
  Receive Date: 20160810
  Receipt Date: 20180908
  Transmission Date: 20181010
  Serious: Yes (Hospitalization, Other)
  Sender: FDA-Public Use
  Company Number: CA-AMGEN-CANSL2016080422

PATIENT
  Age: 65 Year
  Sex: Female

DRUGS (7)
  1. PROLIA [Suspect]
     Active Substance: DENOSUMAB
     Indication: OSTEOPOROSIS POSTMENOPAUSAL
     Dosage: 60 MG/ML, UNK
     Route: 065
     Dates: start: 20160620
  2. ULTRAM [Concomitant]
     Active Substance: TRAMADOL HYDROCHLORIDE
     Route: 065
  3. ZENHALE [Concomitant]
     Active Substance: FORMOTEROL FUMARATE\MOMETASONE FUROATE
  4. CALCIUM [Concomitant]
     Active Substance: CALCIUM
     Dosage: MCALCITRATE LIQU D 1500 MG 1000 UI, BID
  5. VITAMIN D [Concomitant]
     Active Substance: CHOLECALCIFEROL
     Dosage: UNK
  6. PROLIA [Suspect]
     Active Substance: DENOSUMAB
     Indication: OSTEOPOROSIS
  7. SEEBRI BREEZHALER [Concomitant]
     Active Substance: GLYCOPYRROLATE

REACTIONS (15)
  - Iodine allergy [Unknown]
  - Weight decreased [Unknown]
  - Migraine [Unknown]
  - Fatigue [Unknown]
  - Limb discomfort [Unknown]
  - Infectious mononucleosis [Unknown]
  - Muscle spasms [Unknown]
  - Loss of consciousness [Unknown]
  - Cough [Unknown]
  - Mobility decreased [Unknown]
  - Dizziness [Unknown]
  - Dyspnoea [Unknown]
  - Nephrocalcinosis [Unknown]
  - Hypercalcaemia [Unknown]
  - Ligament sprain [Unknown]

NARRATIVE: CASE EVENT DATE: 201606
